FAERS Safety Report 24293540 (Version 1)
Quarter: 2024Q3

REPORT INFORMATION
  Report Type: Spontaneous
  Country: US (occurrence: None)
  Receive Date: 20240906
  Receipt Date: 20240906
  Transmission Date: 20241017
  Serious: No
  Sender: DOMPE FARMACEUTICI
  Company Number: US-FARMAPROD-202308-202402-0339

PATIENT
  Sex: Female
  Weight: 15.42 kg

DRUGS (4)
  1. OXERVATE [Suspect]
     Active Substance: CENEGERMIN-BKBJ
     Indication: Neurotrophic keratopathy
     Route: 047
     Dates: start: 20240122
  2. DEXAMETHASONE-MOXIFLOX-KETOROLAC [Concomitant]
  3. MOXIFLOXACIN [Concomitant]
     Active Substance: MOXIFLOXACIN
  4. IBUPROFEN [Concomitant]
     Active Substance: IBUPROFEN
     Dosage: 100 MG/5ML

REACTIONS (1)
  - Influenza B virus test [Unknown]
